FAERS Safety Report 5590572-6 (Version None)
Quarter: 2008Q1

REPORT INFORMATION
  Report Type: 
  Country: None (occurrence: None)
  Receive Date: 20080110
  Receipt Date: 20071218
  Transmission Date: 20080703
  Serious: Yes (Death)
  Sender: FDA-Public Use
  Company Number: 66400

PATIENT
  Age: 4 Month
  Sex: Male

DRUGS (2)
  1. INFANT COUGH AND COLD/PERRIGO [Suspect]
     Indication: NASOPHARYNGITIS
     Dosage: 0.8 ML TID ORALLY
     Route: 048
     Dates: start: 20011004, end: 20011008
  2. TYLENOL COUGH AND COLD/ MCNEIL [Suspect]
     Indication: NASOPHARYNGITIS
     Dosage: 0.8 ML TID ORALLY
     Route: 048
     Dates: start: 20011004, end: 20011008

REACTIONS (1)
  - DRUG TOXICITY [None]
